FAERS Safety Report 6029499-4 (Version None)
Quarter: 2009Q1

REPORT INFORMATION
  Report Type: 
  Country: None (occurrence: None)
  Receive Date: 20090106
  Receipt Date: 20081223
  Transmission Date: 20090719
  Serious: Yes (Disabling)
  Sender: FDA-Public Use
  Company Number: DK-MERCK-0812DNK00009

PATIENT
  Age: 69 Year
  Sex: Male
  Weight: 125 kg

DRUGS (3)
  1. ZOCOR [Suspect]
     Indication: HYPERCHOLESTEROLAEMIA
     Route: 048
     Dates: start: 20070507, end: 20080701
  2. BENDROFLUMETHIAZIDE AND POTASSIUM CHLORIDE [Concomitant]
     Indication: HYPERTENSION
     Route: 048
     Dates: start: 20070507
  3. ALLOPURINOL [Concomitant]
     Indication: GOUTY ARTHRITIS
     Route: 048
     Dates: start: 20070327

REACTIONS (1)
  - HYPOAESTHESIA [None]
